FAERS Safety Report 4635155-7 (Version None)
Quarter: 2005Q2

REPORT INFORMATION
  Report Type: 
  Country: None (occurrence: None)
  Receive Date: 20050414
  Receipt Date: 20050405
  Transmission Date: 20051028
  Serious: Yes (Hospitalization)
  Sender: FDA-Public Use
  Company Number: US-GLAXOSMITHKLINE-A0552834A

PATIENT
  Age: 42 Year
  Sex: Female

DRUGS (3)
  1. PAXIL CR [Suspect]
     Dosage: 25MG PER DAY
     Route: 048
     Dates: start: 20040701
  2. UNSPECIFIED MEDICATION [Concomitant]
  3. AMBIEN [Concomitant]

REACTIONS (1)
  - ABORTION SPONTANEOUS [None]
